FAERS Safety Report 21174855 (Version 1)
Quarter: 2022Q3

REPORT INFORMATION
  Report Type: Spontaneous
  Country: DE (occurrence: DE)
  Receive Date: 20220805
  Receipt Date: 20220805
  Transmission Date: 20221027
  Serious: No
  Sender: FDA-Public Use
  Company Number: DE-ALKEM LABORATORIES LIMITED-DE-ALKEM-2022-07360

PATIENT
  Sex: Male

DRUGS (1)
  1. PREGABALIN [Suspect]
     Active Substance: PREGABALIN
     Indication: Product used for unknown indication
     Dosage: 100 MILLIGRAM EVERY 1 DAY
     Route: 065

REACTIONS (7)
  - Restlessness [Unknown]
  - Pulse abnormal [Unknown]
  - Withdrawal syndrome [Unknown]
  - Malaise [Unknown]
  - Insomnia [Unknown]
  - Blood pressure fluctuation [Unknown]
  - Anxiety [Unknown]
